FAERS Safety Report 4549214-0 (Version None)
Quarter: 2005Q1

REPORT INFORMATION
  Report Type: 
  Country: None (occurrence: None)
  Receive Date: 20050107
  Receipt Date: 20050107
  Transmission Date: 20050727
  Serious: Yes (Other)
  Sender: FDA-Public Use
  Company Number: None

PATIENT
  Age: 55 Year
  Sex: Male
  Weight: 87.9978 kg

DRUGS (1)
  1. SERTRALINE 100 MG [Suspect]
     Dosage: 50 MG Q DAY ORAL
     Route: 048
     Dates: start: 20030430, end: 20040105

REACTIONS (3)
  - DRUG INEFFECTIVE [None]
  - LIBIDO DECREASED [None]
  - MALE SEXUAL DYSFUNCTION [None]
